FAERS Safety Report 11113781 (Version 2)
Quarter: 2015Q2

REPORT INFORMATION
  Report Type: Spontaneous
  Country: JP (occurrence: JP)
  Receive Date: 20150514
  Receipt Date: 20150601
  Transmission Date: 20150821
  Serious: Yes (Life-Threatening, Other)
  Sender: FDA-Public Use
  Company Number: JP-ELI_LILLY_AND_COMPANY-JP201504005184

PATIENT
  Age: 63 Year
  Sex: Female
  Weight: 60 kg

DRUGS (9)
  1. DOPAMINE [Suspect]
     Active Substance: DOPAMINE\DOPAMINE HYDROCHLORIDE
     Indication: PRODUCT USED FOR UNKNOWN INDICATION
     Dosage: 5-20MCG/KG/MIN
     Route: 042
     Dates: start: 20150318, end: 20150318
  2. NEODAY [Suspect]
     Active Substance: DIPHENHYDRAMINE HYDROCHLORIDE
     Indication: PRODUCT USED FOR UNKNOWN INDICATION
     Dosage: 3750 MG, UNK
     Route: 048
     Dates: start: 20150318, end: 20150318
  3. WUTT [Suspect]
     Active Substance: APRONALIDE\BROMISOVAL\DIPHENHYDRAMINE HYDROCHLORIDE
     Indication: PRODUCT USED FOR UNKNOWN INDICATION
     Dosage: 300 MG, UNK
     Dates: start: 20150318, end: 20150318
  4. ZYPREXA [Suspect]
     Active Substance: OLANZAPINE
     Dosage: 62.5 MG, UNK
     Route: 048
     Dates: start: 20150318, end: 20150318
  5. GOODMIN [Suspect]
     Active Substance: BROTIZOLAM
     Indication: PRODUCT USED FOR UNKNOWN INDICATION
     Dosage: 6.25 MG, UNK
     Route: 048
     Dates: start: 20150318, end: 20150318
  6. DREWELL [Suspect]
     Active Substance: DIPHENHYDRAMINE HYDROCHLORIDE
     Indication: PRODUCT USED FOR UNKNOWN INDICATION
     Dosage: 6600 MG, UNK
     Dates: start: 20150318, end: 20150318
  7. ADRENALINE                         /00948302/ [Suspect]
     Active Substance: LEVONORDEFRIN
     Indication: PRODUCT USED FOR UNKNOWN INDICATION
     Dosage: 1MG/TIME X 2 TIMES
     Route: 042
     Dates: start: 20150318
  8. EURODIN                            /00401202/ [Suspect]
     Active Substance: DIHYDROERGOCRISTINE MESYLATE
     Indication: PRODUCT USED FOR UNKNOWN INDICATION
     Dosage: 50 MG, UNK
     Route: 048
     Dates: start: 20150318, end: 20150318
  9. ZYPREXA [Suspect]
     Active Substance: OLANZAPINE
     Indication: SCHIZOPHRENIA
     Dosage: UNK
     Route: 048

REACTIONS (4)
  - Therapeutic response delayed [Recovered/Resolved]
  - Suicidal ideation [Recovered/Resolved]
  - Cardiac arrest [Recovered/Resolved]
  - Overdose [Recovered/Resolved]

NARRATIVE: CASE EVENT DATE: 20150318
